FAERS Safety Report 18359028 (Version 4)
Quarter: 2021Q3

REPORT INFORMATION
  Report Type: Spontaneous
  Country: US (occurrence: US)
  Receive Date: 20201008
  Receipt Date: 20210902
  Transmission Date: 20211014
  Serious: Yes (Hospitalization, Other)
  Sender: FDA-Public Use
  Company Number: US-ASTRAZENECA-2020SF27156

PATIENT
  Age: 16255 Day
  Sex: Male
  Weight: 117.5 kg

DRUGS (34)
  1. TRAMADOL. [Concomitant]
     Active Substance: TRAMADOL
  2. HYDROCHLOROTHIAZIDE. [Concomitant]
     Active Substance: HYDROCHLOROTHIAZIDE
  3. FARXIGA [Suspect]
     Active Substance: DAPAGLIFLOZIN PROPANEDIOL
     Indication: TYPE 2 DIABETES MELLITUS
     Route: 048
     Dates: start: 20160217, end: 201604
  4. FARXIGA [Suspect]
     Active Substance: DAPAGLIFLOZIN PROPANEDIOL
     Indication: WEIGHT DECREASED
     Route: 048
     Dates: start: 20160616
  5. METFORMIN [Concomitant]
     Active Substance: METFORMIN HYDROCHLORIDE
  6. TRIAMTERENE. [Concomitant]
     Active Substance: TRIAMTERENE
  7. VANCOMYCIN [Concomitant]
     Active Substance: VANCOMYCIN
  8. TRIMETHOPRIM/HYDROCHLOROTHIAZIDE [Concomitant]
  9. ZOSYN [Concomitant]
     Active Substance: PIPERACILLIN SODIUM\TAZOBACTAM SODIUM
  10. LACTOBACILLUS REUTERI/LACTOBACILLUS CASEI/LACTOBACILLUS ACIDOPHILUS/VACCINIUM SPP./LACTOBACILLUS RHA [Concomitant]
  11. FARXIGA [Suspect]
     Active Substance: DAPAGLIFLOZIN PROPANEDIOL
     Indication: TYPE 2 DIABETES MELLITUS
     Route: 048
     Dates: start: 20160616
  12. FARXIGA [Suspect]
     Active Substance: DAPAGLIFLOZIN PROPANEDIOL
     Indication: BLOOD PRESSURE ABNORMAL
     Route: 048
     Dates: start: 20160616
  13. TYLENOL [Concomitant]
     Active Substance: ACETAMINOPHEN
  14. AMARYL [Concomitant]
     Active Substance: GLIMEPIRIDE
  15. LISINOPRIL. [Concomitant]
     Active Substance: LISINOPRIL
  16. PRAVASTATIN. [Concomitant]
     Active Substance: PRAVASTATIN
  17. CLINDAMYCIN. [Concomitant]
     Active Substance: CLINDAMYCIN
  18. HYDROCODONE/PARACETAMOL [Concomitant]
     Active Substance: ACETAMINOPHEN\HYDROCODONE BITARTRATE
  19. FARXIGA [Suspect]
     Active Substance: DAPAGLIFLOZIN PROPANEDIOL
     Indication: WEIGHT DECREASED
     Route: 048
     Dates: start: 20160217, end: 201604
  20. TORADOL [Concomitant]
     Active Substance: KETOROLAC TROMETHAMINE
  21. LEVAQUIN [Concomitant]
     Active Substance: LEVOFLOXACIN
  22. ETODOLAC. [Concomitant]
     Active Substance: ETODOLAC
  23. METHYLPREDNISOLONE. [Concomitant]
     Active Substance: METHYLPREDNISOLONE
  24. FARXIGA [Suspect]
     Active Substance: DAPAGLIFLOZIN PROPANEDIOL
     Indication: BLOOD PRESSURE ABNORMAL
     Route: 048
     Dates: start: 20160217, end: 201604
  25. BACTRIM [Concomitant]
     Active Substance: SULFAMETHOXAZOLE\TRIMETHOPRIM
  26. KETOROLAC [Concomitant]
     Active Substance: KETOROLAC TROMETHAMINE
  27. AUGMENTIN [Concomitant]
     Active Substance: AMOXICILLIN\CLAVULANATE POTASSIUM
  28. AMOXICILLIN. [Concomitant]
     Active Substance: AMOXICILLIN
  29. BENZONATATE. [Concomitant]
     Active Substance: BENZONATATE
  30. NAPROSYN [Concomitant]
     Active Substance: NAPROXEN
  31. KENALOG [Concomitant]
     Active Substance: TRIAMCINOLONE ACETONIDE
  32. CLOTRIM/BETA [Concomitant]
  33. MAXZIDE [Concomitant]
     Active Substance: HYDROCHLOROTHIAZIDE\TRIAMTERENE
  34. LEVOPHED [Concomitant]
     Active Substance: NOREPINEPHRINE BITARTRATE

REACTIONS (14)
  - Scar [Unknown]
  - Abscess limb [Unknown]
  - Sepsis [Unknown]
  - Balanoposthitis [Unknown]
  - Necrosis [Unknown]
  - Scrotal abscess [Unknown]
  - Fournier^s gangrene [Unknown]
  - Phimosis [Unknown]
  - Anal incontinence [Unknown]
  - Prostate cancer [Unknown]
  - Pain [Unknown]
  - Epididymitis [Unknown]
  - Cellulitis [Unknown]
  - Nerve injury [Unknown]

NARRATIVE: CASE EVENT DATE: 20110805
